FAERS Safety Report 9917369 (Version 3)
Quarter: 2014Q2

REPORT INFORMATION
  Report Type: Spontaneous
  Country: US (occurrence: US)
  Receive Date: 20140221
  Receipt Date: 20140627
  Transmission Date: 20141212
  Serious: No
  Sender: FDA-Public Use
  Company Number: US-PFIZER INC-2014048035

PATIENT
  Sex: 0

DRUGS (7)
  1. FLAGYL [Suspect]
     Dosage: UNK
  2. ALDACTAZIDE [Suspect]
     Dosage: UNK
  3. NEOMYCIN SULFATE [Suspect]
     Dosage: UNK
  4. BACITRACIN [Suspect]
     Dosage: UNK
  5. POLYMYXIN [Suspect]
     Dosage: UNK
  6. METOPROLOL [Suspect]
     Dosage: UNK
  7. VICODIN [Suspect]
     Dosage: UNK

REACTIONS (1)
  - Drug hypersensitivity [Unknown]
